FAERS Safety Report 8520884-5 (Version None)
Quarter: 2012Q3

REPORT INFORMATION
  Report Type: 
  Country: None (occurrence: None)
  Receive Date: 20120719
  Receipt Date: 20120711
  Transmission Date: 20120928
  Serious: Yes (Death, Other)
  Sender: FDA-Public Use
  Company Number: JP-CELGENEUS-087-50794-11123739

PATIENT
  Sex: Female
  Weight: 45 kg

DRUGS (62)
  1. VIDAZA [Suspect]
     Dosage: 35 MILLIGRAM
     Route: 041
     Dates: start: 20110727, end: 20110802
  2. ONDANSETRON HYDROCHLORIDE HYDRATE [Concomitant]
     Route: 065
     Dates: start: 20110615, end: 20110802
  3. XYLOCAINE [Concomitant]
     Route: 065
     Dates: start: 20110505
  4. LEVOFLOXACIN [Concomitant]
     Route: 065
     Dates: start: 20110520, end: 20110706
  5. BROCIN CODEINE [Concomitant]
     Route: 065
     Dates: start: 20110525
  6. SILECE [Concomitant]
     Route: 065
     Dates: start: 20110623, end: 20110813
  7. SEKINARIN [Concomitant]
     Route: 065
     Dates: start: 20110711
  8. DORIPENEM MONOHYDRATE [Concomitant]
     Route: 065
     Dates: start: 20110526, end: 20110812
  9. VIDAZA [Suspect]
     Dosage: 100 MILLIGRAM
     Route: 041
     Dates: start: 20110421, end: 20110427
  10. ONON [Concomitant]
     Route: 065
     Dates: end: 20110813
  11. VEEN-D [Concomitant]
     Route: 065
     Dates: start: 20110708, end: 20110715
  12. HEMLON [Concomitant]
     Route: 065
     Dates: start: 20110708, end: 20110711
  13. GRANISETRON HYDROCHLORIDE [Concomitant]
     Route: 065
     Dates: start: 20110428, end: 20110720
  14. CEFEPIME HYDROCHLORIDE [Concomitant]
     Route: 065
     Dates: start: 20110430
  15. VFEND [Concomitant]
     Route: 065
     Dates: start: 20110523, end: 20110602
  16. ZOSYN [Concomitant]
     Route: 065
     Dates: start: 20110811, end: 20110813
  17. THEO-DUR [Concomitant]
     Route: 065
     Dates: end: 20110813
  18. HALOPERIDOL [Concomitant]
     Route: 065
     Dates: start: 20110613, end: 20110613
  19. VANCOMYCIN HYDROCHLORIDE [Concomitant]
     Route: 065
     Dates: start: 20110531, end: 20110811
  20. GLUCOSE [Concomitant]
     Route: 065
     Dates: start: 20110607, end: 20110610
  21. PREDNISOLONE [Concomitant]
     Route: 065
     Dates: start: 20110704, end: 20110713
  22. GASCON [Concomitant]
     Route: 065
     Dates: start: 20110421, end: 20110427
  23. AMBISOME [Concomitant]
     Route: 065
     Dates: end: 20110813
  24. HANP [Concomitant]
     Route: 065
     Dates: start: 20110813, end: 20110801
  25. VIDAZA [Suspect]
     Dosage: 35 MILLIGRAM
     Route: 041
     Dates: start: 20110615, end: 20110621
  26. INDOMETHACIN [Concomitant]
     Route: 065
     Dates: start: 20110510
  27. ZYVOX [Concomitant]
     Route: 065
     Dates: start: 20110610, end: 20110620
  28. MINOCYCLINE HCL [Concomitant]
     Route: 065
     Dates: start: 20110620, end: 20110801
  29. CIPROFLOXACIN [Concomitant]
     Route: 065
     Dates: start: 20110725, end: 20110801
  30. GRAN [Concomitant]
     Route: 065
     Dates: start: 20110526, end: 20110605
  31. SOLU-CORTEF [Concomitant]
     Route: 065
     Dates: start: 20110526, end: 20110811
  32. POTASSIUM CHLORIDE [Concomitant]
     Route: 065
     Dates: start: 20110430, end: 20110801
  33. MUCOSTA [Concomitant]
     Route: 065
     Dates: start: 20110801, end: 20110811
  34. ALBUMIN (HUMAN) [Concomitant]
     Route: 065
  35. MAGMITT [Concomitant]
     Route: 065
     Dates: start: 20110428
  36. ACETAMINOPHEN [Concomitant]
     Route: 065
     Dates: start: 20110425, end: 20110813
  37. GARENOXACIN MESYLATE [Concomitant]
     Route: 065
     Dates: start: 20110425, end: 20110429
  38. MUCODYNE [Concomitant]
     Route: 065
     Dates: end: 20110813
  39. PREDNISOLONE [Concomitant]
     Route: 065
     Dates: start: 20110610, end: 20110630
  40. FAMOTIDINE [Concomitant]
     Route: 065
     Dates: start: 20110812, end: 20110801
  41. LASIX [Concomitant]
     Route: 065
     Dates: start: 20110505, end: 20110801
  42. RECOMODULIN [Concomitant]
     Route: 065
     Dates: start: 20110813, end: 20110813
  43. PURNOSIDE [Concomitant]
     Route: 065
     Dates: start: 20110426
  44. PRAVASTATIN [Concomitant]
     Route: 065
     Dates: end: 20110813
  45. ADONA [Concomitant]
     Route: 065
     Dates: start: 20110708, end: 20110711
  46. LASIX [Concomitant]
     Route: 065
     Dates: start: 20110506, end: 20110813
  47. CLOPERASTINE FENDIZOATE [Concomitant]
     Route: 065
     Dates: start: 20110608, end: 20110813
  48. VANCOMYCIN HYDROCHLORIDE [Concomitant]
     Route: 065
     Dates: start: 20110705, end: 20110713
  49. POTASSIUM CHLORIDE [Concomitant]
     Route: 065
     Dates: start: 20110606, end: 20110609
  50. MEROPENEM [Concomitant]
     Route: 065
     Dates: start: 20110523, end: 20110526
  51. ALDACTONE [Concomitant]
     Route: 065
     Dates: start: 20110701, end: 20110813
  52. SOLMALT [Concomitant]
     Route: 065
     Dates: start: 20110421, end: 20110427
  53. CEFEPIME HYDROCHLORIDE [Concomitant]
     Route: 065
     Dates: start: 20110811, end: 20110813
  54. SANDOGLOBULIN [Concomitant]
     Route: 065
     Dates: start: 20110526, end: 20110610
  55. METHYLPREDNISOLONE SODIUM SUCCINATE [Concomitant]
     Route: 065
     Dates: start: 20110811, end: 20110801
  56. ADALAT [Concomitant]
     Route: 065
     Dates: end: 20110813
  57. ANTEBATE [Concomitant]
     Route: 065
     Dates: start: 20110506
  58. LENDORMIN [Concomitant]
     Route: 065
     Dates: start: 20110524
  59. ATARAX [Concomitant]
     Route: 065
     Dates: start: 20110527, end: 20110527
  60. POTASSIUM L-ASPARTATE [Concomitant]
     Route: 065
     Dates: start: 20110611, end: 20110813
  61. MEROPENEM [Concomitant]
     Route: 065
     Dates: start: 20110613
  62. GASCOOL [Concomitant]
     Route: 065
     Dates: start: 20110811, end: 20110801

REACTIONS (8)
  - DISSEMINATED INTRAVASCULAR COAGULATION [None]
  - FEBRILE NEUTROPENIA [None]
  - PNEUMONIA [None]
  - CARDIAC FAILURE [None]
  - PSEUDOMEMBRANOUS COLITIS [None]
  - PYELONEPHRITIS [None]
  - SYSTEMIC MYCOSIS [None]
  - DEHYDRATION [None]
